FAERS Safety Report 20862905 (Version 1)
Quarter: 2022Q2

REPORT INFORMATION
  Report Type: Report from Study
  Country: GB (occurrence: GB)
  Receive Date: 20220523
  Receipt Date: 20220523
  Transmission Date: 20220721
  Serious: Yes (Hospitalization, Other)
  Sender: FDA-Public Use
  Company Number: GB-SAMSUNG BIOEPIS-SB-2022-11466

PATIENT
  Age: 79 Year
  Sex: Male

DRUGS (2)
  1. AMLODIPINE [Suspect]
     Active Substance: AMLODIPINE BESYLATE
     Indication: Blood pressure abnormal
     Dosage: UNK
     Route: 065
  2. ETANERCEPT [Suspect]
     Active Substance: ETANERCEPT
     Indication: Rheumatoid arthritis
     Dosage: 50 MILLIGRAM, QW
     Route: 058

REACTIONS (12)
  - Thrombosis [Unknown]
  - Fall [Unknown]
  - Head injury [Unknown]
  - Grip strength decreased [Unknown]
  - COVID-19 [Unknown]
  - Decreased appetite [Recovered/Resolved]
  - Peripheral swelling [Unknown]
  - Blood pressure abnormal [Unknown]
  - Gait disturbance [Unknown]
  - Asthenia [Recovering/Resolving]
  - Fatigue [Unknown]
  - Pain [Unknown]
